FAERS Safety Report 21260606 (Version 1)
Quarter: 2022Q3

REPORT INFORMATION
  Report Type: Spontaneous
  Country: FR (occurrence: None)
  Receive Date: 20220826
  Receipt Date: 20220826
  Transmission Date: 20221027
  Serious: Yes (Other)
  Sender: FDA-Public Use
  Company Number: 2022A295405

PATIENT
  Sex: Male

DRUGS (1)
  1. SYMBICORT [Suspect]
     Active Substance: BUDESONIDE\FORMOTEROL FUMARATE DIHYDRATE
     Dosage: 320/9 UG PER DOSE, 400/12 MICROGRAMS
     Route: 055

REACTIONS (3)
  - Agonal respiration [Unknown]
  - Device defective [Unknown]
  - Drug ineffective [Unknown]
